FAERS Safety Report 9756818 (Version 2)
Quarter: 2014Q1

REPORT INFORMATION
  Report Type: Report from Study
  Country: VE (occurrence: VE)
  Receive Date: 20131213
  Receipt Date: 20140121
  Transmission Date: 20141002
  Serious: Yes (Death)
  Sender: FDA-Public Use
  Company Number: VE-ABBVIE-13P-178-1170823-00

PATIENT
  Age: 77 Year
  Sex: Female

DRUGS (2)
  1. ZEMPLAR [Suspect]
     Indication: RENAL FAILURE CHRONIC
     Route: 042
  2. ZEMPLAR [Suspect]
     Indication: RENAL FAILURE

REACTIONS (1)
  - Cardiac disorder [Fatal]
